FAERS Safety Report 25655412 (Version 2)
Quarter: 2025Q3

REPORT INFORMATION
  Report Type: Spontaneous
  Country: US (occurrence: US)
  Receive Date: 20250807
  Receipt Date: 20250820
  Transmission Date: 20251020
  Serious: Yes (Other)
  Sender: TEVA
  Company Number: US-TEVA-VS-3358555

PATIENT
  Age: 18 Year
  Sex: Male

DRUGS (3)
  1. RISPERIDONE [Suspect]
     Active Substance: RISPERIDONE
     Indication: Schizophrenia
     Route: 065
  2. ARIPIPRAZOLE [Interacting]
     Active Substance: ARIPIPRAZOLE
     Indication: Schizophrenia
     Route: 065
  3. PROPRANOLOL [Suspect]
     Active Substance: PROPRANOLOL HYDROCHLORIDE
     Indication: Akathisia
     Route: 065

REACTIONS (9)
  - Weight increased [Unknown]
  - Gynaecomastia [Unknown]
  - Nausea [Recovered/Resolved]
  - Dystonia [Unknown]
  - Vomiting [Recovered/Resolved]
  - Akathisia [Recovered/Resolved]
  - Drug interaction [Unknown]
  - Therapy non-responder [Unknown]
  - Diarrhoea [Recovered/Resolved]
